FAERS Safety Report 5730435-6 (Version None)
Quarter: 2008Q2

REPORT INFORMATION
  Report Type: 
  Country: None (occurrence: None)
  Receive Date: 20080507
  Receipt Date: 20080428
  Transmission Date: 20081010
  Serious: Yes (Other)
  Sender: FDA-Public Use
  Company Number: ES-JNJFOC-20080405234

PATIENT
  Age: 71 Year
  Sex: Male

DRUGS (4)
  1. REMICADE [Suspect]
     Indication: COLITIS ULCERATIVE
     Route: 042
  2. MERCAPTOPURINE [Concomitant]
     Indication: COLITIS ULCERATIVE
  3. AZATHIOPRINE [Concomitant]
     Indication: COLITIS ULCERATIVE
  4. CORTICOIDS [Concomitant]
     Indication: COLITIS ULCERATIVE

REACTIONS (3)
  - DRUG INEFFECTIVE [None]
  - LYMPHOMA [None]
  - RECTAL ULCER [None]
